FAERS Safety Report 7255843-6 (Version None)
Quarter: 2011Q1

REPORT INFORMATION
  Report Type: 
  Country: None (occurrence: None)
  Receive Date: 20110129
  Receipt Date: 20100526
  Transmission Date: 20110831
  Serious: Yes (Hospitalization)
  Sender: FDA-Public Use
  Company Number: US-ABBOTT-10P-163-0646000-00

PATIENT
  Sex: Male
  Weight: 74.8 kg

DRUGS (6)
  1. VALTREX [Concomitant]
     Indication: HIV INFECTION
  2. TRUVATA [Concomitant]
     Indication: HIV INFECTION
  3. HUMIRA [Suspect]
     Indication: REITER'S SYNDROME
     Dates: start: 20080501
  4. MEPRON [Concomitant]
     Indication: HIV INFECTION
  5. ISENTRESS [Concomitant]
     Indication: HIV INFECTION
  6. INTELENCE [Concomitant]
     Indication: HIV INFECTION

REACTIONS (6)
  - INJECTION SITE SWELLING [None]
  - WEIGHT DECREASED [None]
  - INJECTION SITE PRURITUS [None]
  - ANAL CANCER [None]
  - DIARRHOEA [None]
  - ANAL CANCER METASTATIC [None]
